FAERS Safety Report 9240722 (Version 1)
Quarter: 2013Q1

REPORT INFORMATION
  Report Type: Spontaneous
  Country: US (occurrence: None)
  Receive Date: 20121120
  Receipt Date: 20121120
  Transmission Date: 20140127
  Serious: No
  Sender: FDA-Public Use
  Company Number: 1000038893

PATIENT
  Sex: Female

DRUGS (1)
  1. VIIBRYD [Suspect]
     Dosage: 10MG (10MG, 1 IN 1 D)
     Route: 048

REACTIONS (4)
  - Nervousness [None]
  - Anxiety [None]
  - Malaise [None]
  - Increased appetite [None]
